FAERS Safety Report 18397526 (Version 3)
Quarter: 2020Q4

REPORT INFORMATION
  Report Type: Spontaneous
  Country: DE (occurrence: DE)
  Receive Date: 20201019
  Receipt Date: 20201204
  Transmission Date: 20210114
  Serious: Yes (Hospitalization, Other)
  Sender: FDA-Public Use
  Company Number: NVSC2020DE272405

PATIENT
  Sex: Female

DRUGS (29)
  1. MIRTAZAPIN [Concomitant]
     Active Substance: MIRTAZAPINE
     Dosage: 30 MG, QD (30 MILLIGRAM, QD) (2 X 15 MG)
     Route: 065
     Dates: start: 20200430
  2. MST [Concomitant]
     Indication: NEOPLASM
     Dosage: 4 DRP, PRN (4 DROPS AS NEEDED)
     Route: 065
     Dates: start: 20200119
  3. MOVICOL [Concomitant]
     Active Substance: POLYETHYLENE GLYCOL 3350\POTASSIUM CHLORIDE\SODIUM BICARBONATE\SODIUM CHLORIDE
     Indication: PROPHYLAXIS
     Dosage: UNK, SACHET
     Route: 065
     Dates: start: 20191210
  4. IBUPROFEN. [Concomitant]
     Active Substance: IBUPROFEN
     Indication: NEOPLASM
     Dosage: 2400 MG, QD (600 MILLIGRAM, QID)
     Route: 065
     Dates: start: 20191103
  5. PREDNISOLONE. [Suspect]
     Active Substance: PREDNISOLONE
     Dosage: 100 MG, QD
     Route: 042
     Dates: start: 20200807
  6. NIVOLUMAB [Suspect]
     Active Substance: NIVOLUMAB
     Indication: SQUAMOUS CELL CARCINOMA OF HEAD AND NECK
     Dosage: 240 MG, BIW (240 MILLIGRAM, Q2WK)
     Route: 042
     Dates: start: 20191104, end: 20200715
  7. TIANEURAX [Concomitant]
     Active Substance: TIANEPTINE SODIUM
     Indication: PRODUCT USED FOR UNKNOWN INDICATION
     Dosage: 12.5 MG, QD (12.5 MILLIGRAM, QD)
     Route: 065
     Dates: start: 20200430
  8. QUETIAPIN [Concomitant]
     Active Substance: QUETIAPINE
     Dosage: 12.5 MG, QD (12.5 MILLIGRAM, QD)
     Route: 065
     Dates: start: 20200430
  9. DIMETINDENE [Concomitant]
     Active Substance: DIMETHINDENE
     Indication: PROPHYLAXIS
     Dosage: 4 MG, QD (4 MILLIGRAM, QD)
     Route: 065
     Dates: start: 20191104, end: 20191104
  10. NIVOLUMAB [Suspect]
     Active Substance: NIVOLUMAB
     Dosage: 240 MG, BIW (240 MILLIGRAM, Q2WK)
     Route: 042
     Dates: start: 20200826, end: 20200909
  11. MORPHINE [Concomitant]
     Active Substance: MORPHINE
     Indication: NEOPLASM
     Dosage: UNK (5 R 2 PERCENT)
     Route: 042
     Dates: start: 20191210
  12. MORPHINE [Concomitant]
     Active Substance: MORPHINE
     Dosage: UNK
     Route: 065
  13. QUETIAPIN [Concomitant]
     Active Substance: QUETIAPINE
     Indication: NEOPLASM
     Dosage: 50 MG, QD (50 MILLIGRAM, QD)
     Route: 065
     Dates: start: 20191103
  14. PARACETAMOL [Concomitant]
     Active Substance: ACETAMINOPHEN
     Indication: PROPHYLAXIS
     Dosage: 1000 MG, QD (1000 MILLIGRAM, QD)
     Route: 048
     Dates: start: 20191104, end: 20191104
  15. L THYROXINE [Concomitant]
     Active Substance: LEVOTHYROXINE SODIUM
     Indication: METABOLIC DISORDER
     Dosage: 50 MG, QD (PRIOR TO START OF NIVOLUMAB TREATMENT)
     Route: 065
  16. ESOMEPRAZOLE. [Concomitant]
     Active Substance: ESOMEPRAZOLE MAGNESIUM
     Indication: PRODUCT USED FOR UNKNOWN INDICATION
     Dosage: UNK
     Route: 065
  17. XARELTO [Concomitant]
     Active Substance: RIVAROXABAN
     Indication: PRODUCT USED FOR UNKNOWN INDICATION
     Dosage: UNK
     Route: 065
  18. PREDNISOLONE. [Suspect]
     Active Substance: PREDNISOLONE
     Indication: PNEUMONITIS
     Dosage: 1 MG/KG
     Route: 065
     Dates: start: 20200804, end: 20200807
  19. FENTANYL. [Concomitant]
     Active Substance: FENTANYL
     Indication: NEOPLASM
     Dosage: 23.12 MG, QD (5.78 MILLIGRAM, QID)
     Route: 065
     Dates: start: 20191111
  20. FENTANYL. [Concomitant]
     Active Substance: FENTANYL
     Dosage: 11.56 MG, QD (2.89 MILLIGRAM, QID)
     Route: 065
     Dates: start: 20191111
  21. MIRTAZAPIN [Concomitant]
     Active Substance: MIRTAZAPINE
     Indication: NEOPLASM
     Dosage: 15 MG, QD (15 MILLIGRAM, QD)
     Route: 065
     Dates: start: 20191103
  22. GRANISETRON [Concomitant]
     Active Substance: GRANISETRON
     Indication: PROPHYLAXIS
     Dosage: 2 MG, PRN (2 MILLIGRAM, AS NEEDED)
     Route: 065
     Dates: start: 20200129
  23. NOVALGIN [Concomitant]
     Indication: NEOPLASM
     Dosage: 120 DF, QD (30 ABSENT, QID)
     Route: 065
     Dates: start: 20191103
  24. CLEXANE [Concomitant]
     Active Substance: ENOXAPARIN SODIUM
     Indication: PROPHYLAXIS
     Dosage: 40 MG, QD (40 MILLIGRAM, QD)
     Route: 065
     Dates: start: 20191223
  25. OMEP [Concomitant]
     Active Substance: OMEPRAZOLE
     Indication: PROPHYLAXIS
     Dosage: 40 MG, QD
     Route: 065
     Dates: start: 20191104
  26. NIVOLUMAB [Suspect]
     Active Substance: NIVOLUMAB
     Dosage: UNK
     Route: 065
  27. CLINDAMYCIN. [Concomitant]
     Active Substance: CLINDAMYCIN
     Indication: PROPHYLAXIS
     Dosage: 1200 DF, QD (300 ABSENT, QID)
     Route: 065
     Dates: start: 20191103
  28. MCP [Concomitant]
     Active Substance: METOCLOPRAMIDE HYDROCHLORIDE
     Indication: PROPHYLAXIS
     Dosage: 10 MG (10 MILLIGRAM)
     Route: 065
     Dates: start: 20191209
  29. CANNABIS [Concomitant]
     Active Substance: CANNABIS SATIVA SUBSP. INDICA TOP
     Indication: PRODUCT USED FOR UNKNOWN INDICATION
     Route: 065

REACTIONS (5)
  - Pneumonia [Unknown]
  - Pneumonitis [Unknown]
  - Lymphocyte count decreased [Unknown]
  - Pneumonia aspiration [Not Recovered/Not Resolved]
  - General physical health deterioration [Unknown]

NARRATIVE: CASE EVENT DATE: 201911
